FAERS Safety Report 18210456 (Version 2)
Quarter: 2020Q4

REPORT INFORMATION
  Report Type: Spontaneous
  Country: US (occurrence: US)
  Receive Date: 20200829
  Receipt Date: 20201027
  Transmission Date: 20210113
  Serious: No
  Sender: FDA-Public Use
  Company Number: US-ASTRAZENECA-2020SF09103

PATIENT
  Sex: Female

DRUGS (1)
  1. PULMICORT FLEXHALER [Suspect]
     Active Substance: BUDESONIDE
     Indication: CORONAVIRUS INFECTION
     Route: 055
     Dates: start: 20200811

REACTIONS (3)
  - Cough [Unknown]
  - Device malfunction [Unknown]
  - Product dose omission issue [Unknown]
